FAERS Safety Report 24068437 (Version 3)
Quarter: 2024Q3

REPORT INFORMATION
  Report Type: Report from Study
  Country: CN (occurrence: CN)
  Receive Date: 20240710
  Receipt Date: 20240710
  Transmission Date: 20241017
  Serious: No
  Sender: ROCHE
  Company Number: CN-ROCHE-3147276

PATIENT
  Age: 72 Year
  Sex: Female

DRUGS (4)
  1. ALECTINIB [Suspect]
     Active Substance: ALECTINIB
     Indication: Non-small cell lung cancer metastatic
     Route: 048
     Dates: start: 20220621
  2. CRIZOTINIB [Concomitant]
     Active Substance: CRIZOTINIB
     Dates: start: 201710, end: 202206
  3. HUMAN GRANULOCYTE COLONY STIMULATING FACTOR INJECTION (UNK INGREDIENTS [Concomitant]
     Route: 058
     Dates: start: 20220621, end: 20220624
  4. DEXAMETHASONE SODIUM PHOSPHATE [Concomitant]
     Active Substance: DEXAMETHASONE PHOSPHATE\DEXAMETHASONE SODIUM PHOSPHATE
     Route: 042
     Dates: start: 20230419, end: 20230419

REACTIONS (1)
  - Fatigue [Not Recovered/Not Resolved]

NARRATIVE: CASE EVENT DATE: 20220621
